FAERS Safety Report 19371580 (Version 2)
Quarter: 2021Q2

REPORT INFORMATION
  Report Type: Spontaneous
  Country: US (occurrence: US)
  Receive Date: 20210603
  Receipt Date: 20210608
  Transmission Date: 20210717
  Serious: No
  Sender: FDA-Public Use
  Company Number: US-SA-2021SA145257

PATIENT
  Sex: Male
  Weight: 85.67 kg

DRUGS (4)
  1. DUPIXENT [Suspect]
     Active Substance: DUPILUMAB
     Indication: MULTIPLE SCLEROSIS
  2. DUPIXENT [Suspect]
     Active Substance: DUPILUMAB
     Indication: ILLNESS
  3. DUPIXENT [Suspect]
     Active Substance: DUPILUMAB
     Indication: CYSTIC FIBROSIS
     Dosage: UNK
     Route: 058
     Dates: start: 202101
  4. DUPIXENT [Suspect]
     Active Substance: DUPILUMAB
     Indication: NASAL POLYPS

REACTIONS (6)
  - Rhinorrhoea [Unknown]
  - Dysphonia [Unknown]
  - Product use in unapproved indication [Unknown]
  - Cough [Unknown]
  - Nasal congestion [Unknown]
  - Discharge [Unknown]

NARRATIVE: CASE EVENT DATE: 202101
